FAERS Safety Report 7262487-9 (Version None)
Quarter: 2011Q1

REPORT INFORMATION
  Report Type: 
  Country: None (occurrence: None)
  Receive Date: 20110130
  Receipt Date: 20101129
  Transmission Date: 20110831
  Serious: No
  Sender: FDA-Public Use
  Company Number: US-ABBOTT-10P-163-0688169-00

PATIENT
  Age: 49 Year
  Sex: Male

DRUGS (12)
  1. XANAX [Concomitant]
     Indication: ANXIETY
  2. VITAMIN D [Concomitant]
     Indication: PRODUCT USED FOR UNKNOWN INDICATION
  3. ASCORBIC ACID [Concomitant]
     Indication: PRODUCT USED FOR UNKNOWN INDICATION
  4. HUMIRA [Suspect]
  5. MULTI-VITAMIN [Concomitant]
     Indication: PRODUCT USED FOR UNKNOWN INDICATION
  6. CALCIUM [Concomitant]
     Indication: PRODUCT USED FOR UNKNOWN INDICATION
  7. PREDNISONE [Concomitant]
  8. PREDNISONE [Concomitant]
     Indication: PRODUCT USED FOR UNKNOWN INDICATION
  9. PREDNISONE [Concomitant]
  10. HUMIRA [Suspect]
     Indication: CROHN'S DISEASE
     Dosage: 160MG LOADING DOSE - DAY 1
     Dates: start: 20101120, end: 20101120
  11. XANAX XR [Concomitant]
     Indication: ANXIETY
     Dosage: AT HOUR OF SLEEP
  12. PREDNISONE [Concomitant]

REACTIONS (2)
  - INJECTION SITE PAIN [None]
  - INJECTION SITE PAPULE [None]
